FAERS Safety Report 9166483 (Version 1)
Quarter: 2013Q1

REPORT INFORMATION
  Report Type: Report from Study
  Country: CA (occurrence: CA)
  Receive Date: 20130315
  Receipt Date: 20130315
  Transmission Date: 20140127
  Serious: Yes (Other)
  Sender: FDA-Public Use
  Company Number: CA-JNJFOC-20121106359

PATIENT
  Age: 48 Year
  Sex: Female
  Weight: 65.1 kg

DRUGS (3)
  1. REMICADE [Suspect]
     Indication: CROHN^S DISEASE
     Dosage: 7 INFUSIONS
     Route: 042
  2. ASCAL [Concomitant]
     Route: 065
  3. PARIET [Concomitant]
     Route: 065

REACTIONS (1)
  - Musculoskeletal stiffness [Recovered/Resolved]
